FAERS Safety Report 5517968-2 (Version None)
Quarter: 2007Q4

REPORT INFORMATION
  Report Type: 
  Country: None (occurrence: None)
  Receive Date: 20071115
  Receipt Date: 20071107
  Transmission Date: 20080405
  Serious: Yes (Hospitalization, Other)
  Sender: FDA-Public Use
  Company Number: PHHO2007US12298

PATIENT
  Age: 59 Year
  Sex: Male
  Weight: 119 kg

DRUGS (3)
  1. CERTICAN [Suspect]
     Indication: RENAL TRANSPLANT
     Dosage: 1.5 MG, BID
     Route: 048
     Dates: start: 20070719
  2. PREDNISONE TAB [Concomitant]
     Indication: RENAL TRANSPLANT
     Dosage: UNK, UNK
     Dates: start: 20070723
  3. NEORAL [Suspect]
     Indication: RENAL TRANSPLANT
     Dosage: 200 MG, Q12H
     Route: 048
     Dates: start: 20070720

REACTIONS (10)
  - ABDOMINAL INFECTION [None]
  - ANURIA [None]
  - COMPLICATIONS OF TRANSPLANTED KIDNEY [None]
  - HYPOTENSION [None]
  - ISCHAEMIA [None]
  - MYOCARDIAL INFARCTION [None]
  - NEPHROPATHY TOXIC [None]
  - RENAL TUBULAR NECROSIS [None]
  - URINE OUTPUT DECREASED [None]
  - WOUND EVISCERATION [None]
